FAERS Safety Report 22395166 (Version 1)
Quarter: 2023Q2

REPORT INFORMATION
  Report Type: Spontaneous
  Country: US (occurrence: US)
  Receive Date: 20230601
  Receipt Date: 20230601
  Transmission Date: 20230722
  Serious: No
  Sender: FDA-Public Use
  Company Number: US-APIL-2314941US

PATIENT
  Age: 87 Year
  Sex: Female

DRUGS (5)
  1. COMBIGAN [Suspect]
     Active Substance: BRIMONIDINE TARTRATE\TIMOLOL MALEATE
     Indication: Glaucoma
     Route: 047
  2. COMBIGAN [Suspect]
     Active Substance: BRIMONIDINE TARTRATE\TIMOLOL MALEATE
     Indication: Intraocular pressure increased
  3. LUMIGAN [Concomitant]
     Active Substance: BIMATOPROST
  4. PREDNISOLONE ACETATE [Concomitant]
     Active Substance: PREDNISOLONE ACETATE
     Route: 047
  5. TASOLIMIDE [Concomitant]
     Indication: Product used for unknown indication
     Route: 047

REACTIONS (1)
  - Eye allergy [Unknown]

NARRATIVE: CASE EVENT DATE: 20230516
